FAERS Safety Report 20029866 (Version 1)
Quarter: 2021Q4

REPORT INFORMATION
  Report Type: Spontaneous
  Country: US (occurrence: None)
  Receive Date: 20211103
  Receipt Date: 20211103
  Transmission Date: 20220303
  Serious: No
  Sender: FDA-Public Use
  Company Number: 2021A761764

PATIENT
  Sex: Male
  Weight: 77.1 kg

DRUGS (4)
  1. LYNPARZA [Suspect]
     Active Substance: OLAPARIB
     Indication: Prostate cancer metastatic
     Route: 048
     Dates: start: 2021, end: 2021
  2. LYNPARZA [Suspect]
     Active Substance: OLAPARIB
     Indication: Prostate cancer metastatic
     Route: 048
     Dates: start: 2021
  3. OMEPRAZOLE [Concomitant]
     Active Substance: OMEPRAZOLE
     Indication: Gastrooesophageal reflux disease
     Dosage: UNKNOWN
     Route: 065
  4. VITAMIN D [Concomitant]
     Active Substance: VITAMIN D NOS
     Dosage: UNKNOWN
     Route: 065

REACTIONS (4)
  - Laboratory test abnormal [Recovered/Resolved]
  - Foreign body in throat [Not Recovered/Not Resolved]
  - Fatigue [Recovering/Resolving]
  - Somnolence [Recovering/Resolving]

NARRATIVE: CASE EVENT DATE: 20210101
